FAERS Safety Report 4875297-4 (Version None)
Quarter: 2006Q1

REPORT INFORMATION
  Report Type: 
  Country: None (occurrence: None)
  Receive Date: 20060104
  Receipt Date: 20051229
  Transmission Date: 20060701
  Serious: Yes (Hospitalization)
  Sender: FDA-Public Use
  Company Number: LTI2005A00323

PATIENT
  Age: 65 Year
  Sex: Male

DRUGS (7)
  1. LANSOPRAZOLE [Suspect]
     Indication: GASTRIC ULCER
     Dosage: 30 MG (30 MG, 1 IN 1 D) ORAL
     Route: 048
     Dates: start: 20050827
  2. ALDACTONE [Suspect]
     Indication: HYPERTENSION
     Dosage: 25 MG (25 MG, 1 IN 1 D) ORAL
     Route: 048
     Dates: start: 20050827, end: 20051003
  3. OFLOCET (OFLOXACIN) (200 MILLIGRAM, TABLETS) [Suspect]
     Indication: HYPERKERATOSIS
     Dosage: 400 MG (200 MG, 2 IN 1 D), ORAL
     Route: 048
     Dates: start: 20051104, end: 20051108
  4. MONOTILDIEM (DILTIAZEM HYDROCHLORIDE) (TABLETS) [Suspect]
     Indication: HYPERTENSION
     Dosage: 200 MG (200 MG, 1 IN 1 D) ORAL
     Route: 048
  5. TAREG (VALSARTAN) (TABLETS) [Suspect]
     Indication: HYPERTENSION
     Dosage: 80 MG (80 MG, 1 IN 1 D) ORAL
     Route: 048
  6. REVIA (NALTREXONE HYDROCHLORIDE) (TABLETS) [Suspect]
     Indication: ALCOHOLISM
     Dosage: 50 MG (50 MG, 1 IN 1 D) ORAL
     Route: 048
     Dates: start: 20051104, end: 20051117
  7. LEVOTHYROX (LEVOTHYROXINE SODIUM) (TABLETS) [Suspect]
     Indication: HYPOTHYROIDISM
     Dosage: 175 MCG (175 MCG, 1 IN 1 D) ORAL
     Route: 048

REACTIONS (3)
  - CUTANEOUS VASCULITIS [None]
  - HYPERKERATOSIS [None]
  - VASCULAR PURPURA [None]
